FAERS Safety Report 10777305 (Version 1)
Quarter: 2015Q1

REPORT INFORMATION
  Report Type: Report from Study
  Country: ZA (occurrence: ZA)
  Receive Date: 20150209
  Receipt Date: 20150209
  Transmission Date: 20150721
  Serious: Yes (Congenital Anomaly, Other)
  Sender: FDA-Public Use
  Company Number: PHHY2015ZA014891

PATIENT
  Sex: Male
  Weight: 2.18 kg

DRUGS (10)
  1. ETHAMBUTOL [Suspect]
     Active Substance: ETHAMBUTOL HYDROCHLORIDE
     Route: 064
  2. NEVIRAPINE. [Suspect]
     Active Substance: NEVIRAPINE
     Dosage: MOTHER DOSE 400MG/DAY
     Route: 064
  3. KALETRA [Suspect]
     Active Substance: LOPINAVIR\RITONAVIR
     Dosage: MOTHER DOSE 8 TAB/CAP
     Route: 064
  4. LAMIVUDINE. [Suspect]
     Active Substance: LAMIVUDINE
     Dosage: MOTHER DOSE 300 MG/DAY
     Route: 064
  5. STAVUDINE. [Suspect]
     Active Substance: STAVUDINE
     Dosage: MOTHER DOSE 60MG/DAY
     Route: 064
  6. PYRAZINAMIDE. [Suspect]
     Active Substance: PYRAZINAMIDE
     Route: 064
  7. ISONIAZID. [Suspect]
     Active Substance: ISONIAZID
     Route: 064
  8. TENOFOVIR DISOPROXIL FUMARATE [Suspect]
     Active Substance: TENOFOVIR DISOPROXIL FUMARATE
     Dosage: MOTHER DOSE 300 MG/DAY
     Route: 064
  9. RIFAMPIN. [Suspect]
     Active Substance: RIFAMPIN
     Route: 064
  10. RIFAMPIN. [Suspect]
     Active Substance: RIFAMPIN
     Route: 064

REACTIONS (9)
  - Premature baby [Unknown]
  - Foetal growth restriction [Unknown]
  - Foetal exposure during pregnancy [Unknown]
  - Low set ears [Unknown]
  - Trisomy 21 [Unknown]
  - Skull malformation [Unknown]
  - Foot deformity [Unknown]
  - Protrusion tongue [Unknown]
  - Pericardial effusion [Unknown]
